FAERS Safety Report 9819918 (Version 1)
Quarter: 2014Q1

REPORT INFORMATION
  Report Type: Spontaneous
  Country: US (occurrence: None)
  Receive Date: 20140113
  Receipt Date: 20140113
  Transmission Date: 20141002
  Serious: Yes (Disabling, Other)
  Sender: FDA-Public Use
  Company Number: None

PATIENT
  Sex: 0

DRUGS (1)
  1. ANDROGEL [Suspect]
     Indication: HYPOGONADISM
     Dosage: ONCE DAILY APPLIED TO  A SURFACE, USUALLY THE SKIN
     Route: 061

REACTIONS (4)
  - Acne [None]
  - Hair growth abnormal [None]
  - Exposure via partner [None]
  - Blood testosterone increased [None]
